FAERS Safety Report 4745292-4 (Version None)
Quarter: 2005Q3

REPORT INFORMATION
  Report Type: 
  Country: None (occurrence: None)
  Receive Date: 20050812
  Receipt Date: 20050805
  Transmission Date: 20060218
  Serious: Yes (Death)
  Sender: FDA-Public Use
  Company Number: B0389943A

PATIENT
  Sex: 0

DRUGS (7)
  1. VINORELBINE TARTRATE [Suspect]
     Indication: NON-SMALL CELL LUNG CANCER
     Dosage: 300 MG/M2 / CYCLIC / INTRAVENOUS INFUSI
     Route: 042
  2. CISPLATIN [Suspect]
     Indication: NON-SMALL CELL LUNG CANCER
     Dosage: 80 MG/M2 / CYCLIC
  3. GRANULOCYTE COL. STIM. FACT [Concomitant]
  4. ONDANSETRON HYDROCHLORIDE [Concomitant]
  5. DEXAMETHASONE [Concomitant]
  6. HYDRATION THERAPY [Concomitant]
  7. DIURETIC [Concomitant]

REACTIONS (1)
  - SUDDEN DEATH [None]
